FAERS Safety Report 15495282 (Version 1)
Quarter: 2018Q4

REPORT INFORMATION
  Report Type: Spontaneous
  Country: ES (occurrence: ES)
  Receive Date: 20181013
  Receipt Date: 20181013
  Transmission Date: 20190205
  Serious: Yes (Other)
  Sender: FDA-Public Use
  Company Number: ES-TEVA-2018-ES-963892

PATIENT
  Age: 12 Year
  Sex: Female
  Weight: 46 kg

DRUGS (1)
  1. ETOPOSIDE. [Suspect]
     Active Substance: ETOPOSIDE
     Indication: EPENDYMOMA
     Dosage: 140 MILLIGRAM DAILY;
     Route: 042
     Dates: start: 20180618, end: 20180618

REACTIONS (2)
  - Choking sensation [Recovered/Resolved]
  - Face oedema [Recovered/Resolved]

NARRATIVE: CASE EVENT DATE: 20180618
